FAERS Safety Report 9492949 (Version 2)
Quarter: 2013Q3

REPORT INFORMATION
  Report Type: Spontaneous
  Country: ES (occurrence: ES)
  Receive Date: 20130902
  Receipt Date: 20130902
  Transmission Date: 20140515
  Serious: Yes (Hospitalization, Other)
  Sender: FDA-Public Use
  Company Number: ES-JNJFOC-20110912407

PATIENT
  Age: 5 Year
  Sex: Female

DRUGS (4)
  1. IBUPROFEN [Suspect]
     Indication: PRODUCT USED FOR UNKNOWN INDICATION
  2. ACETAMINOPHEN [Suspect]
     Route: 065
  3. ACETAMINOPHEN [Suspect]
     Indication: PRODUCT USED FOR UNKNOWN INDICATION
     Route: 065
  4. PENICILLINE [Suspect]
     Indication: PRODUCT USED FOR UNKNOWN INDICATION
     Route: 065

REACTIONS (9)
  - Toxic epidermal necrolysis [Recovered/Resolved with Sequelae]
  - Blindness [Unknown]
  - Iris adhesions [Unknown]
  - Photophobia [Unknown]
  - Lacrimation increased [Unknown]
  - Eyelid disorder [Unknown]
  - Vulvar erosion [Unknown]
  - Skin discolouration [Unknown]
  - Atrophic glossitis [Unknown]
